FAERS Safety Report 5227931-7 (Version None)
Quarter: 2007Q1

REPORT INFORMATION
  Report Type: 
  Country: None (occurrence: None)
  Receive Date: 20070202
  Receipt Date: 20070122
  Transmission Date: 20070707
  Serious: Yes (Death, Other)
  Sender: FDA-Public Use
  Company Number: US-PFIZER INC-2005034926

PATIENT
  Sex: Male
  Weight: 80.7 kg

DRUGS (1)
  1. CELEBREX [Suspect]
     Indication: BACK PAIN
     Route: 048
     Dates: start: 19990101, end: 20030124

REACTIONS (1)
  - MYOCARDIAL INFARCTION [None]
